FAERS Safety Report 17461650 (Version 12)
Quarter: 2020Q3

REPORT INFORMATION
  Report Type: Report from Study
  Country: US (occurrence: US)
  Receive Date: 20200226
  Receipt Date: 20200929
  Transmission Date: 20201102
  Serious: Yes (Life-Threatening, Other)
  Sender: FDA-Public Use
  Company Number: NVSC2020US052020

PATIENT
  Age: 69 Year
  Sex: Male

DRUGS (4)
  1. BEOVU [Suspect]
     Active Substance: BROLUCIZUMAB-DBLL
     Indication: NEOVASCULAR AGE-RELATED MACULAR DEGENERATION
     Dosage: UNK (VIAL)
     Route: 047
     Dates: start: 20200114
  2. EYLEA [Suspect]
     Active Substance: AFLIBERCEPT
     Indication: NEOVASCULAR AGE-RELATED MACULAR DEGENERATION
     Dosage: UNK
     Route: 065
  3. BEOVU [Suspect]
     Active Substance: BROLUCIZUMAB-DBLL
     Dosage: UNK
     Route: 047
     Dates: start: 202002
  4. BEOVU [Suspect]
     Active Substance: BROLUCIZUMAB-DBLL
     Dosage: UNK
     Route: 047

REACTIONS (13)
  - Cerebrovascular accident [Unknown]
  - Intraocular pressure increased [Unknown]
  - Foreign body sensation in eyes [Unknown]
  - Visual acuity reduced [Unknown]
  - Ocular discomfort [Unknown]
  - Macular degeneration [Unknown]
  - Vitreous haze [Unknown]
  - Vision blurred [Unknown]
  - Drug ineffective [Unknown]
  - Feeling abnormal [Unknown]
  - Injection site pain [Unknown]
  - Eye irritation [Unknown]
  - Visual field defect [Unknown]

NARRATIVE: CASE EVENT DATE: 20200219
